FAERS Safety Report 6218793-X (Version None)
Quarter: 2009Q2

REPORT INFORMATION
  Report Type: 
  Country: None (occurrence: None)
  Receive Date: 20090608
  Receipt Date: 20090529
  Transmission Date: 20091009
  Serious: Yes (Hospitalization, Other)
  Sender: FDA-Public Use
  Company Number: IT-ABBOTT-09P-083-0576729-00

PATIENT
  Age: 34 Year
  Sex: Female

DRUGS (5)
  1. WARFARIN [Suspect]
     Indication: DRUG USE FOR UNKNOWN INDICATION
     Dosage: MEAN DAILY DOSE 5 MG
  2. WARFARIN [Interacting]
     Dosage: MEAN DAILY DOSE 1.25 MG
  3. EFAVIRENZ [Interacting]
     Indication: ANTIRETROVIRAL THERAPY
     Dosage: NOT REPORTED
  4. DIDANOSINE [Concomitant]
     Indication: ANTIRETROVIRAL THERAPY
     Dosage: NOT REPORTED
  5. LAMIVUDINE [Concomitant]
     Indication: ANTIRETROVIRAL THERAPY
     Dosage: NOT REPORTED

REACTIONS (2)
  - DRUG INTERACTION [None]
  - INTERNATIONAL NORMALISED RATIO INCREASED [None]
